FAERS Safety Report 20219039 (Version 1)
Quarter: 2021Q4

REPORT INFORMATION
  Report Type: Spontaneous
  Country: TR (occurrence: TR)
  Receive Date: 20211222
  Receipt Date: 20211222
  Transmission Date: 20220304
  Serious: Yes (Other)
  Sender: FDA-Public Use
  Company Number: TR-NOVARTISPH-NVSC2021TR288273

PATIENT
  Age: 41 Year
  Sex: Male

DRUGS (1)
  1. ILARIS [Suspect]
     Active Substance: CANAKINUMAB
     Indication: Familial amyloidosis
     Dosage: UNK, (1 IN 28 DAYS)
     Route: 065
     Dates: start: 202001

REACTIONS (4)
  - Familial amyloidosis [Unknown]
  - Condition aggravated [Unknown]
  - Product supply issue [Unknown]
  - Off label use [Unknown]
